FAERS Safety Report 6558638-1 (Version None)
Quarter: 2010Q1

REPORT INFORMATION
  Report Type: 
  Country: None (occurrence: None)
  Receive Date: 20100129
  Receipt Date: 20100119
  Transmission Date: 20100710
  Serious: Yes (Hospitalization, Other)
  Sender: FDA-Public Use
  Company Number: US-WATSON-2010-00645

PATIENT
  Age: 66 Year
  Sex: Female

DRUGS (5)
  1. HYDROXYCHLOROQUINE SULFATE (WATSON LABORATORIES) [Suspect]
     Indication: GOUT
     Dosage: 200 MG, BID
     Route: 048
  2. HYDROXYCHLOROQUINE SULFATE (WATSON LABORATORIES) [Suspect]
     Indication: RHEUMATOID ARTHRITIS
  3. COLCHICINE (WATSON LABORATORIES) [Suspect]
     Indication: GOUT
     Dosage: UNK
     Route: 065
  4. COLCHICINE (WATSON LABORATORIES) [Suspect]
     Indication: RHEUMATOID ARTHRITIS
  5. PREDNISONE TAB [Suspect]
     Indication: POLYMYOSITIS
     Dosage: 80 MG, UNK
     Route: 065

REACTIONS (3)
  - ATRIOVENTRICULAR BLOCK COMPLETE [None]
  - MYOPATHY [None]
  - NEUROPATHY PERIPHERAL [None]
